FAERS Safety Report 18173612 (Version 1)
Quarter: 2020Q3

REPORT INFORMATION
  Report Type: Spontaneous
  Country: CL (occurrence: CL)
  Receive Date: 20200819
  Receipt Date: 20200819
  Transmission Date: 20201103
  Serious: Yes (Death, Other)
  Sender: FDA-Public Use
  Company Number: CL-INCYTE CORPORATION-2020IN008054

PATIENT

DRUGS (1)
  1. JAKAVI [Suspect]
     Active Substance: RUXOLITINIB
     Indication: MYELOFIBROSIS
     Dosage: 5 MG, BID
     Route: 048
     Dates: start: 20191216

REACTIONS (2)
  - Gastrointestinal haemorrhage [Unknown]
  - Myelofibrosis [Fatal]

NARRATIVE: CASE EVENT DATE: 202003
